FAERS Safety Report 23427964 (Version 1)
Quarter: 2024Q1

REPORT INFORMATION
  Report Type: Spontaneous
  Country: GB (occurrence: GB)
  Receive Date: 20240122
  Receipt Date: 20240122
  Transmission Date: 20240410
  Serious: Yes (Other)
  Sender: FDA-Public Use
  Company Number: None

PATIENT
  Age: 71 Year
  Sex: Female
  Weight: 59 kg

DRUGS (18)
  1. AMLODIPINE [Suspect]
     Active Substance: AMLODIPINE BESYLATE
     Indication: Product used for unknown indication
  2. AVEENO [Concomitant]
     Active Substance: DIMETHICONE\HOMOSALATE\OCTINOXATE\OCTISALATE\TITANIUM DIOXIDE
     Dosage: USE REG
     Dates: start: 20221104
  3. CALCIUM CARBONATE\CHOLECALCIFEROL [Concomitant]
     Active Substance: CALCIUM CARBONATE\CHOLECALCIFEROL
     Dates: start: 20210218
  4. COAL TAR\COCONUT OIL\SALICYLIC ACID [Concomitant]
     Active Substance: COAL TAR\COCONUT OIL\SALICYLIC ACID
     Dosage: WEEKLY AS DIRECTED
     Dates: start: 20210218
  5. UNSPECIFIED INGREDIENT [Concomitant]
     Active Substance: UNSPECIFIED INGREDIENT
     Dosage: APPLY ONE DROP BOTH EYES FOUR HOURLY
     Dates: start: 20220228
  6. AMOXICILLIN [Concomitant]
     Active Substance: AMOXICILLIN
     Dates: start: 20231110, end: 20231115
  7. BENZYDAMINE HYDROCHLORIDE [Concomitant]
     Active Substance: BENZYDAMINE HYDROCHLORIDE
     Dosage: USE BEFORE BRUSHING TEETH AND WHEN NEEDED AS DI...
     Dates: start: 20210218
  8. BETAMETHASONE SODIUM PHOSPHATE [Concomitant]
     Active Substance: BETAMETHASONE SODIUM PHOSPHATE
     Dosage: ONE UP TO FOUR TIMES DAILY WHEN REQUIRED (TO BE...
     Dates: start: 20210407
  9. BISOPROLOL [Concomitant]
     Active Substance: BISOPROLOL\BISOPROLOL FUMARATE
     Dates: start: 20220510
  10. CETIRIZINE [Concomitant]
     Active Substance: CETIRIZINE HYDROCHLORIDE
     Dates: start: 20221104
  11. IBUPROFEN [Concomitant]
     Active Substance: IBUPROFEN
     Dosage: APPLY 3 TIMES/DAY WHEN REQUIRED
     Dates: start: 20230425
  12. LANSOPRAZOLE [Concomitant]
     Active Substance: LANSOPRAZOLE
     Dates: start: 20220510
  13. LERCANIDIPINE HYDROCHLORIDE [Concomitant]
     Active Substance: LERCANIDIPINE HYDROCHLORIDE
     Dates: start: 20231229
  14. LEVOTHYROXINE [Concomitant]
     Active Substance: LEVOTHYROXINE\LEVOTHYROXINE SODIUM
     Dates: start: 20221104
  15. LOSARTAN [Concomitant]
     Active Substance: LOSARTAN
     Dosage: TAKE ONE DAILY (TOTAL 75MG DAILY)
     Dates: start: 20230213
  16. METFORMIN [Concomitant]
     Active Substance: METFORMIN HYDROCHLORIDE
     Dosage: 2 TABLET TO BE TAKEN TWICE DAILY WITH MEAL
     Dates: start: 20221104
  17. MOMETASONE [Concomitant]
     Active Substance: MOMETASONE
     Dosage: APPLY DAILY AS NEEDED
     Dates: start: 20231205, end: 20240102
  18. CROMOLYN SODIUM [Concomitant]
     Active Substance: CROMOLYN SODIUM
     Dosage: 1-2 DROPS UP TO FOUR TIMES A DAY WHEN NEEDED
     Dates: start: 20220701

REACTIONS (1)
  - Swelling face [Recovered/Resolved]
